FAERS Safety Report 17554825 (Version 1)
Quarter: 2020Q1

REPORT INFORMATION
  Report Type: Spontaneous
  Country: DE (occurrence: DE)
  Receive Date: 20200318
  Receipt Date: 20200318
  Transmission Date: 20200409
  Serious: No
  Sender: FDA-Public Use
  Company Number: DE-B.I. PHARMACEUTICALS,INC./RIDGEFIELD-2020-12-014464

PATIENT
  Age: 74 Year
  Sex: Male

DRUGS (2)
  1. GLIMEPIRID [Concomitant]
     Active Substance: GLIMEPIRIDE
     Indication: PRODUCT USED FOR UNKNOWN INDICATION
     Route: 065
  2. JARDIANCE [Suspect]
     Active Substance: EMPAGLIFLOZIN
     Indication: PRODUCT USED FOR UNKNOWN INDICATION
     Route: 065

REACTIONS (6)
  - Nausea [Unknown]
  - Cough [Unknown]
  - Decreased appetite [Unknown]
  - Language disorder [Unknown]
  - Malaise [Unknown]
  - Urine ketone body [Recovering/Resolving]

NARRATIVE: CASE EVENT DATE: 202002
